FAERS Safety Report 18854295 (Version 2)
Quarter: 2021Q2

REPORT INFORMATION
  Report Type: Spontaneous
  Country: US (occurrence: US)
  Receive Date: 20210205
  Receipt Date: 20210506
  Transmission Date: 20210717
  Serious: Yes (Hospitalization, Disabling, Other)
  Sender: FDA-Public Use
  Company Number: US-ASTRAZENECA-2021A023762

PATIENT
  Age: 14349 Day
  Sex: Female
  Weight: 81.6 kg

DRUGS (50)
  1. DAPSONE. [Concomitant]
     Active Substance: DAPSONE
     Indication: PAIN
     Dates: start: 2020
  2. PROCRIT [Concomitant]
     Active Substance: ERYTHROPOIETIN
     Indication: NEPHROGENIC ANAEMIA
     Dates: start: 2020
  3. ENVARSUS XR [Concomitant]
     Active Substance: TACROLIMUS
     Indication: TRANSPLANT REJECTION
     Dates: start: 2020, end: 2021
  4. FLUDROCORTISONE [Concomitant]
     Active Substance: FLUDROCORTISONE
     Indication: HYPOTENSION
     Dates: start: 2020
  5. NEPHRO VITE RX [Concomitant]
     Active Substance: ASCORBIC ACID\BIOTIN\CALCIUM PANTOTHENATE\CYANOCOBALAMIN\FOLIC ACID\NIACINAMIDE\PYRIDOXINE HYDROCHLORIDE\RIBOFLAVIN\THIAMINE MONONITRATE
     Indication: HYPOVITAMINOSIS
     Dates: start: 2019, end: 2020
  6. LISINOPRIL. [Concomitant]
     Active Substance: LISINOPRIL
     Indication: CARDIAC FAILURE
     Dates: start: 2018, end: 2019
  7. FLUTICASONE. [Concomitant]
     Active Substance: FLUTICASONE
     Indication: RHINITIS
     Dates: start: 2020
  8. ALBUTEROL. [Concomitant]
     Active Substance: ALBUTEROL
     Indication: BRONCHOSPASM
     Dates: start: 2020
  9. AMLODIPINE [Concomitant]
     Active Substance: AMLODIPINE BESYLATE
     Indication: CHEST PAIN
     Dates: start: 2018, end: 2020
  10. LISINOPRIL. [Concomitant]
     Active Substance: LISINOPRIL
     Indication: HYPERTENSION
     Dates: start: 2018, end: 2019
  11. RECOMBIVAX [Concomitant]
  12. PREDNISONE. [Concomitant]
     Active Substance: PREDNISONE
     Indication: INFLAMMATION
     Dates: start: 2019, end: 2021
  13. MYCOPHENOLATE [Concomitant]
     Active Substance: MYCOPHENOLIC ACID
     Indication: TRANSPLANT REJECTION
     Dates: start: 2020, end: 2021
  14. FLUDROCORTISONE [Concomitant]
     Active Substance: FLUDROCORTISONE
     Indication: ADRENOGENITAL SYNDROME
     Dates: start: 2020
  15. CLONIDINE. [Concomitant]
     Active Substance: CLONIDINE
     Dates: start: 2019
  16. PRILOSEC OTC [Suspect]
     Active Substance: OMEPRAZOLE MAGNESIUM
     Indication: GASTROOESOPHAGEAL REFLUX DISEASE
     Route: 048
     Dates: start: 2018, end: 2019
  17. HYDROCODONE [Concomitant]
     Active Substance: HYDROCODONE
     Indication: PAIN
     Dates: start: 2019, end: 2020
  18. CYCLOBEZAPRINE [Concomitant]
     Indication: MUSCLE SPASMS
     Dates: start: 2020
  19. FUROSEMIDE. [Concomitant]
     Active Substance: FUROSEMIDE
     Indication: FLUID RETENTION
     Dates: start: 2020
  20. SODIUM POLYSTYRENE SULFONATE. [Concomitant]
     Active Substance: SODIUM POLYSTYRENE SULFONATE
     Indication: BLOOD POTASSIUM ABNORMAL
     Dates: start: 2020
  21. FISH OIL [Concomitant]
     Active Substance: FISH OIL
     Dates: start: 2018
  22. DOCUSATE SODIUM. [Concomitant]
     Active Substance: DOCUSATE SODIUM
     Indication: CONSTIPATION
     Dates: start: 2020
  23. CYCLOBEZAPRINE [Concomitant]
     Indication: PAIN
     Dates: start: 2020
  24. FLUDROCORTISONE [Concomitant]
     Active Substance: FLUDROCORTISONE
     Indication: ADRENAL INSUFFICIENCY
     Dates: start: 2020
  25. CALCIUM ACETATE. [Concomitant]
     Active Substance: CALCIUM ACETATE
     Indication: BLOOD PHOSPHORUS ABNORMAL
     Dates: start: 2019, end: 2020
  26. LOPERAMIDE [Concomitant]
     Active Substance: LOPERAMIDE
  27. HYPERTONIC SALINE [Concomitant]
     Active Substance: SODIUM CHLORIDE
  28. DAPSONE. [Concomitant]
     Active Substance: DAPSONE
     Indication: LEPROSY
     Dates: start: 2020
  29. VAIGANCICLOVIR [Concomitant]
     Indication: CYTOMEGALOVIRUS TEST
     Dates: start: 2020, end: 2021
  30. RHOFADE [Concomitant]
     Active Substance: OXYMETAZOLINE HYDROCHLORIDE
     Indication: ROSACEA
     Dates: start: 2021
  31. LOSARTAN. [Concomitant]
     Active Substance: LOSARTAN
     Indication: CARDIAC FAILURE
     Dates: start: 2019, end: 2020
  32. LACTULOSE. [Concomitant]
     Active Substance: LACTULOSE
     Indication: CONSTIPATION
     Dates: start: 2020
  33. PEPCID [Concomitant]
     Active Substance: FAMOTIDINE
     Dates: start: 2019
  34. DAPSONE. [Concomitant]
     Active Substance: DAPSONE
     Indication: DERMATITIS
     Dates: start: 2020
  35. AMLODIPINE [Concomitant]
     Active Substance: AMLODIPINE BESYLATE
     Indication: HYPERTENSION
     Dates: start: 2018, end: 2020
  36. LOSARTAN. [Concomitant]
     Active Substance: LOSARTAN
     Indication: HYPERTENSION
     Dates: start: 2019, end: 2020
  37. NICOTINE. [Concomitant]
     Active Substance: NICOTINE
     Indication: EX-TOBACCO USER
     Dates: start: 2019
  38. FAMOTIDINE. [Concomitant]
     Active Substance: FAMOTIDINE
     Dates: start: 2019
  39. NITROGLYCERIN. [Concomitant]
     Active Substance: NITROGLYCERIN
  40. KAYEXALATE [Concomitant]
     Active Substance: SODIUM POLYSTYRENE SULFONATE
  41. PANTOPRAZOLE [Suspect]
     Active Substance: PANTOPRAZOLE
     Indication: GASTROOESOPHAGEAL REFLUX DISEASE
     Route: 065
     Dates: start: 202007
  42. PANTOPRAZOLE [Suspect]
     Active Substance: PANTOPRAZOLE
     Indication: GASTROOESOPHAGEAL REFLUX DISEASE
     Dosage: 40.0MG UNKNOWN
     Route: 065
     Dates: start: 20190927
  43. DOCUSATE SODIUM. [Concomitant]
     Active Substance: DOCUSATE SODIUM
     Indication: FAECES SOFT
     Dates: start: 2020
  44. LABETALOL [Concomitant]
     Active Substance: LABETALOL\LABETALOL HYDROCHLORIDE
     Indication: HYPERTENSION
     Dates: start: 2019, end: 2020
  45. TACROLIMUS. [Concomitant]
     Active Substance: TACROLIMUS
     Indication: TRANSPLANT REJECTION
     Dates: start: 2020
  46. METFORMIN [Concomitant]
     Active Substance: METFORMIN HYDROCHLORIDE
     Indication: BLOOD GLUCOSE FLUCTUATION
     Dates: start: 2020, end: 2021
  47. ALBUTEROL. [Concomitant]
     Active Substance: ALBUTEROL
     Indication: ASTHMA
     Dates: start: 2020
  48. HYDRALAZINE [Concomitant]
     Active Substance: HYDRALAZINE HYDROCHLORIDE
     Indication: HYPERTENSION
     Dates: start: 2020
  49. FUROSEMIDE. [Concomitant]
     Active Substance: FUROSEMIDE
     Indication: CARDIAC FAILURE CONGESTIVE
     Dates: start: 2020
  50. NIFEDIPINE. [Concomitant]
     Active Substance: NIFEDIPINE
     Indication: HYPERTENSION
     Dates: start: 2020

REACTIONS (6)
  - Nephrogenic anaemia [Unknown]
  - End stage renal disease [Not Recovered/Not Resolved]
  - Acute kidney injury [Not Recovered/Not Resolved]
  - Hyperparathyroidism secondary [Unknown]
  - Chronic kidney disease [Not Recovered/Not Resolved]
  - Renal failure [Unknown]

NARRATIVE: CASE EVENT DATE: 20190923
